FAERS Safety Report 5324938-6 (Version None)
Quarter: 2007Q2

REPORT INFORMATION
  Report Type: 
  Country: None (occurrence: None)
  Receive Date: 20070515
  Receipt Date: 20070502
  Transmission Date: 20071010
  Serious: Yes (Other)
  Sender: FDA-Public Use
  Company Number: US-AMGEN-US199839

PATIENT
  Sex: Female
  Weight: 47.2 kg

DRUGS (8)
  1. PROCRIT [Suspect]
     Indication: ANAEMIA
     Route: 058
     Dates: start: 20061001, end: 20070301
  2. MICARDIS [Concomitant]
     Route: 065
  3. VITAMINS [Concomitant]
     Route: 065
  4. IRON [Concomitant]
     Route: 065
  5. LASIX [Concomitant]
     Route: 065
  6. POTASSIUM CHLORIDE [Concomitant]
     Route: 065
  7. PRILOSEC [Concomitant]
     Route: 065
  8. OXYGEN [Concomitant]

REACTIONS (5)
  - ALOPECIA [None]
  - FALL [None]
  - FRACTURE [None]
  - HAEMOGLOBIN INCREASED [None]
  - POSTOPERATIVE WOUND INFECTION [None]
